FAERS Safety Report 11756815 (Version 3)
Quarter: 2016Q1

REPORT INFORMATION
  Report Type: Spontaneous
  Country: US (occurrence: US)
  Receive Date: 20151120
  Receipt Date: 20160119
  Transmission Date: 20160525
  Serious: No
  Sender: FDA-Public Use
  Company Number: PHEH2015US023544

PATIENT
  Age: 8 Year
  Sex: Male
  Weight: 28.69 kg

DRUGS (23)
  1. QUILLIVANT XR [Suspect]
     Active Substance: METHYLPHENIDATE HYDROCHLORIDE
     Dosage: 8 ML, QD (AM)
     Route: 048
  2. FOCALIN XR [Suspect]
     Active Substance: DEXMETHYLPHENIDATE HYDROCHLORIDE
     Dosage: 30 MG CAPSULE QAM (IN MORNING)
     Route: 048
     Dates: start: 20150128, end: 20150204
  3. FLUOXETINE [Suspect]
     Active Substance: FLUOXETINE HYDROCHLORIDE
     Indication: ANGER
  4. FOCALIN XR [Suspect]
     Active Substance: DEXMETHYLPHENIDATE HYDROCHLORIDE
     Indication: ATTENTION DEFICIT/HYPERACTIVITY DISORDER
     Dosage: 20 MG, QAM (EVERY MORNING)
     Route: 048
     Dates: start: 20121004
  5. FOCALIN XR [Suspect]
     Active Substance: DEXMETHYLPHENIDATE HYDROCHLORIDE
     Dosage: 20 MG, UNK
     Route: 048
     Dates: start: 20130404
  6. QUILLIVANT XR [Suspect]
     Active Substance: METHYLPHENIDATE HYDROCHLORIDE
     Dosage: 10 ML, UNK
     Route: 048
     Dates: start: 201505
  7. QUILLIVANT XR [Suspect]
     Active Substance: METHYLPHENIDATE HYDROCHLORIDE
     Dosage: 4 ML, QD  (IN MORNING)
     Route: 048
     Dates: start: 20150810
  8. CONCERTA [Suspect]
     Active Substance: METHYLPHENIDATE HYDROCHLORIDE
     Indication: ATTENTION DEFICIT/HYPERACTIVITY DISORDER
     Dosage: 36 MG, QAM (EVERY MORNING)
     Route: 048
     Dates: start: 20150204
  9. FOCALIN XR [Suspect]
     Active Substance: DEXMETHYLPHENIDATE HYDROCHLORIDE
     Indication: ANGER
     Dosage: 20 MG, UNK
     Route: 048
     Dates: start: 20130304
  10. FOCALIN XR [Suspect]
     Active Substance: DEXMETHYLPHENIDATE HYDROCHLORIDE
     Dosage: 30 MG, UNK (OPENED AND ADDED APPLESAUCE OR CHOCOLATE SYRUP)
     Route: 048
     Dates: start: 20130916
  11. QUILLIVANT XR [Suspect]
     Active Substance: METHYLPHENIDATE HYDROCHLORIDE
     Dosage: 6 ML, QD (AM)
     Route: 048
     Dates: start: 20150309
  12. QUILLIVANT XR [Suspect]
     Active Substance: METHYLPHENIDATE HYDROCHLORIDE
     Dosage: 10 ML, QD (IN THE MORNING) 25 MG/5ML POWDER FOR RECONSTITUTION, EXTENDED RELEASE
     Route: 048
     Dates: start: 20150930
  13. DAYTRANA [Suspect]
     Active Substance: METHYLPHENIDATE
     Indication: ATTENTION DEFICIT/HYPERACTIVITY DISORDER
     Dosage: 1 DF, QD (APPLY IN AM)
     Route: 061
     Dates: start: 20150221
  14. FOCALIN XR [Suspect]
     Active Substance: DEXMETHYLPHENIDATE HYDROCHLORIDE
     Indication: SCHOOL REFUSAL
     Dosage: 20 MG, UNK
     Route: 048
     Dates: start: 20130204
  15. FOCALIN XR [Suspect]
     Active Substance: DEXMETHYLPHENIDATE HYDROCHLORIDE
     Dosage: 20 MG, QAM (EVERY MORNING) FOR 3 MONTHS
     Route: 048
     Dates: start: 20130808
  16. QUILLIVANT XR [Suspect]
     Active Substance: METHYLPHENIDATE HYDROCHLORIDE
     Indication: ATTENTION DEFICIT/HYPERACTIVITY DISORDER
     Dosage: 2 TSP, UNK (AM)
     Route: 048
     Dates: start: 20150210
  17. METHYLIN ER [Suspect]
     Active Substance: METHYLPHENIDATE HYDROCHLORIDE
     Indication: ATTENTION DEFICIT/HYPERACTIVITY DISORDER
     Dosage: 2 TSP, QAM (EVERY MORNING)
     Route: 048
  18. FOCALIN XR [Suspect]
     Active Substance: DEXMETHYLPHENIDATE HYDROCHLORIDE
     Dosage: 20 MG CAPSULE QAM (IN MORNING)
     Route: 048
     Dates: start: 20141215
  19. QUILLIVANT XR [Suspect]
     Active Substance: METHYLPHENIDATE HYDROCHLORIDE
     Dosage: 10 ML, QAM (IN MORNING)
     Route: 048
     Dates: start: 20150402
  20. QUILLIVANT XR [Suspect]
     Active Substance: METHYLPHENIDATE HYDROCHLORIDE
     Dosage: 2 TSP, UNK (AM) FOR 2 MONTHS
     Route: 048
     Dates: start: 20150720
  21. FLUOXETINE [Suspect]
     Active Substance: FLUOXETINE HYDROCHLORIDE
     Indication: SCHOOL REFUSAL
  22. FOCALIN XR [Suspect]
     Active Substance: DEXMETHYLPHENIDATE HYDROCHLORIDE
     Dosage: 20 MG, FOR 3 MONTHS
     Route: 048
     Dates: start: 20140911, end: 20150204
  23. FLUOXETINE [Suspect]
     Active Substance: FLUOXETINE HYDROCHLORIDE
     Indication: ATTENTION DEFICIT/HYPERACTIVITY DISORDER
     Dosage: 20 MG, QAM (EVERY MORNING)
     Route: 065
     Dates: start: 20141007

REACTIONS (14)
  - Hypoaesthesia [Unknown]
  - Blood pressure diastolic decreased [Unknown]
  - Pharyngitis [Unknown]
  - Pollakiuria [Unknown]
  - Eating disorder [Not Recovered/Not Resolved]
  - Feeling abnormal [Unknown]
  - Oropharyngeal pain [Unknown]
  - Underweight [Not Recovered/Not Resolved]
  - Drug ineffective [Unknown]
  - Sinusitis [Unknown]
  - Diarrhoea [Unknown]
  - Weight gain poor [Unknown]
  - Oppositional defiant disorder [Unknown]
  - Ear pain [Unknown]

NARRATIVE: CASE EVENT DATE: 20121217
